FAERS Safety Report 9967995 (Version 1)
Quarter: 2014Q1

REPORT INFORMATION
  Report Type: Spontaneous
  Country: US (occurrence: US)
  Receive Date: 20140306
  Receipt Date: 20140306
  Transmission Date: 20141002
  Serious: No
  Sender: FDA-Public Use
  Company Number: US-ABBVIE-13P-163-1143891-00

PATIENT
  Age: 22 Year
  Sex: Female
  Weight: 68.1 kg

DRUGS (2)
  1. HUMIRA [Suspect]
     Indication: CROHN^S DISEASE
     Dates: start: 201203
  2. PRENATAL [Concomitant]
     Indication: VITAMIN SUPPLEMENTATION

REACTIONS (4)
  - Anxiety [Not Recovered/Not Resolved]
  - Injection site pain [Not Recovered/Not Resolved]
  - Nervousness [Not Recovered/Not Resolved]
  - Device malfunction [Unknown]
